FAERS Safety Report 18435161 (Version 1)
Quarter: 2020Q4

REPORT INFORMATION
  Report Type: Spontaneous
  Country: GB (occurrence: GB)
  Receive Date: 20201028
  Receipt Date: 20201028
  Transmission Date: 20210114
  Serious: Yes (Hospitalization)
  Sender: FDA-Public Use
  Company Number: GB-ACCORD-206423

PATIENT
  Age: 89 Year
  Sex: Female
  Weight: 80 kg

DRUGS (8)
  1. CARBOMER [Concomitant]
     Active Substance: CARBOMER
  2. FUROSEMIDE. [Concomitant]
     Active Substance: FUROSEMIDE
  3. PREGABALIN. [Concomitant]
     Active Substance: PREGABALIN
  4. APIXABAN [Suspect]
     Active Substance: APIXABAN
     Indication: DEEP VEIN THROMBOSIS
     Route: 048
     Dates: end: 20201009
  5. PARACETAMOL [Concomitant]
     Active Substance: ACETAMINOPHEN
  6. LEVOTHYROXINE. [Concomitant]
     Active Substance: LEVOTHYROXINE
  7. CANDESARTAN. [Concomitant]
     Active Substance: CANDESARTAN
  8. FOLIC ACID. [Concomitant]
     Active Substance: FOLIC ACID

REACTIONS (1)
  - Duodenal ulcer haemorrhage [Recovering/Resolving]

NARRATIVE: CASE EVENT DATE: 20201009
